FAERS Safety Report 23827288 (Version 2)
Quarter: 2025Q1

REPORT INFORMATION
  Report Type: Spontaneous
  Country: US (occurrence: US)
  Receive Date: 20240507
  Receipt Date: 20250116
  Transmission Date: 20250409
  Serious: No
  Sender: INCYTE
  Company Number: US-INCYTE CORPORATION-2024IN004624

PATIENT

DRUGS (3)
  1. JAKAFI [Suspect]
     Active Substance: RUXOLITINIB
     Dosage: 15 MILLIGRAM, BID
     Route: 048
     Dates: start: 20210708
  2. JAKAFI [Suspect]
     Active Substance: RUXOLITINIB
     Dosage: 15 MILLIGRAM, BID
     Route: 048
  3. JAKAFI [Suspect]
     Active Substance: RUXOLITINIB
     Dosage: 15 MILLIGRAM, QD
     Route: 048

REACTIONS (10)
  - Joint swelling [Unknown]
  - Hypoaesthesia [Not Recovered/Not Resolved]
  - Bone pain [Unknown]
  - Flatulence [Unknown]
  - Fatigue [Unknown]
  - Pain [Unknown]
  - Insomnia [Unknown]
  - Depression [Unknown]
  - Abdominal pain upper [Unknown]
  - Product dose omission issue [Unknown]
